FAERS Safety Report 5027106-0 (Version None)
Quarter: 2006Q2

REPORT INFORMATION
  Report Type: 
  Country: None (occurrence: None)
  Receive Date: 20060608
  Receipt Date: 20060526
  Transmission Date: 20061013
  Serious: Yes (Hospitalization)
  Sender: FDA-Public Use
  Company Number: 2006068929

PATIENT
  Age: 68 Year
  Sex: Male

DRUGS (4)
  1. TOLTERODINE TARTRATE [Suspect]
     Indication: MICTURITION URGENCY
     Dosage: 4 MG (4 MG, 1 IN 1 D), ORAL
     Route: 048
     Dates: start: 20050101
  2. TOLTERODINE TARTRATE [Suspect]
     Indication: POLLAKIURIA
     Dosage: 4 MG (4 MG, 1 IN 1 D), ORAL
     Route: 048
     Dates: start: 20050101
  3. ATACAND [Concomitant]
  4. PLAVIX [Concomitant]

REACTIONS (4)
  - DIZZINESS [None]
  - MENIERE'S DISEASE [None]
  - PARALYSIS [None]
  - TRANSIENT ISCHAEMIC ATTACK [None]
